FAERS Safety Report 17658392 (Version 4)
Quarter: 2023Q2

REPORT INFORMATION
  Report Type: Report from Study
  Country: CO (occurrence: CO)
  Receive Date: 20200412
  Receipt Date: 20230426
  Transmission Date: 20230722
  Serious: Yes (Hospitalization, Disabling)
  Sender: FDA-Public Use
  Company Number: CO-BIOGEN-2020BI00859012

PATIENT
  Age: 50 Year
  Sex: Female
  Weight: 70 kg

DRUGS (6)
  1. AVONEX [Suspect]
     Active Substance: INTERFERON BETA-1A
     Indication: Multiple sclerosis
     Route: 050
     Dates: start: 200406
  2. AVONEX [Suspect]
     Active Substance: INTERFERON BETA-1A
  3. AVONEX [Suspect]
     Active Substance: INTERFERON BETA-1A
  4. AVONEX [Suspect]
     Active Substance: INTERFERON BETA-1A
  5. GABAPENTIN [Concomitant]
     Active Substance: GABAPENTIN
     Indication: Muscle spasticity
     Route: 050
     Dates: start: 2013
  6. BACLOFEN [Concomitant]
     Active Substance: BACLOFEN
     Indication: Product used for unknown indication
     Route: 050
     Dates: start: 2013

REACTIONS (6)
  - Road traffic accident [Recovered/Resolved]
  - Hip fracture [Recovered/Resolved with Sequelae]
  - Femur fracture [Recovered/Resolved with Sequelae]
  - Lower limb fracture [Recovered/Resolved with Sequelae]
  - Osteomyelitis [Recovered/Resolved]
  - Mobility decreased [Not Recovered/Not Resolved]

NARRATIVE: CASE EVENT DATE: 20141230
